FAERS Safety Report 25870212 (Version 1)
Quarter: 2025Q4

REPORT INFORMATION
  Report Type: Spontaneous
  Country: US (occurrence: None)
  Receive Date: 20251001
  Receipt Date: 20251001
  Transmission Date: 20260118
  Serious: Yes (Life-Threatening, Other)
  Sender: FDA-CTU
  Company Number: None

PATIENT
  Age: 35 Year
  Sex: Male
  Weight: 63 kg

DRUGS (1)
  1. 7-HYDROXYMITRAGYNINE [Suspect]
     Active Substance: 7-HYDROXYMITRAGYNINE
     Indication: Depression
     Dosage: OTHER QUANTITY : 1 TABLET(S);?FREQUENCY : AS NEEDED;?
     Route: 048

REACTIONS (10)
  - Drug dependence [None]
  - Drug withdrawal syndrome [None]
  - Self-injurious ideation [None]
  - Blood follicle stimulating hormone decreased [None]
  - Sleep disorder [None]
  - Anxiety [None]
  - Cold sweat [None]
  - Pain [None]
  - Negative thoughts [None]
  - Product complaint [None]

NARRATIVE: CASE EVENT DATE: 20241001
